FAERS Safety Report 9837277 (Version 3)
Quarter: 2014Q1

REPORT INFORMATION
  Report Type: Report from Study
  Country: US (occurrence: US)
  Receive Date: 20140123
  Receipt Date: 20140321
  Transmission Date: 20141002
  Serious: Yes (Other)
  Sender: FDA-Public Use
  Company Number: US-BAYER-2014-005187

PATIENT
  Age: 62 Year
  Sex: Female
  Weight: 79.6 kg

DRUGS (8)
  1. RIOCIGUAT (GUANYLATE CYCLASE STIMULATOR) [Suspect]
     Indication: PULMONARY HYPERTENSION
     Dosage: 1.0 MG, TID
     Route: 048
     Dates: start: 20130918, end: 20131001
  2. RIOCIGUAT (GUANYLATE CYCLASE STIMULATOR) [Suspect]
     Indication: PULMONARY HYPERTENSION
     Dosage: 1.5 MG, TID
     Route: 048
     Dates: start: 20131002, end: 20131115
  3. CYMBALTA [Concomitant]
     Indication: DEPRESSION
     Dosage: TOTAL DAILY DOSE 120 MG
     Route: 048
     Dates: start: 20091230
  4. LUNESTA [Concomitant]
     Indication: INSOMNIA
     Dosage: TOTAL DAILY DOSE 3 MG
     Route: 048
     Dates: start: 20100510
  5. ATIVAN [Concomitant]
     Indication: ANXIETY
     Dosage: TOTAL DAILY DOSE 1 MG PRN
     Route: 048
     Dates: start: 20091230
  6. ZYPREXA [Concomitant]
     Indication: DEPRESSION
     Dosage: TOTAL DAILY 5 MG
     Route: 048
     Dates: start: 20091230
  7. VICODIN [Concomitant]
     Indication: GASTROINTESTINAL PAIN
     Dosage: TOTAL DAILY 1 TAB PRN
     Route: 048
     Dates: start: 20131103, end: 20131105
  8. WARFARIN [Concomitant]
     Dosage: M, W, FR 4 MG; TU,TH, SA, SU 3 MG AT BEDTIME
     Route: 048
     Dates: start: 20100911

REACTIONS (6)
  - Syncope [Recovered/Resolved]
  - Pain in extremity [None]
  - Local swelling [None]
  - Ecchymosis [None]
  - Arthralgia [None]
  - Headache [None]
